FAERS Safety Report 8074206-7 (Version None)
Quarter: 2012Q1

REPORT INFORMATION
  Report Type: 
  Country: None (occurrence: None)
  Receive Date: 20120126
  Receipt Date: 20120125
  Transmission Date: 20120608
  Serious: Yes (Other)
  Sender: FDA-Public Use
  Company Number: BR-PFIZER INC-2011302132

PATIENT
  Age: 72 Year
  Sex: Female

DRUGS (2)
  1. OLMESARTAN MEDOXOMIL AND HYDROCHLOROTHIZIDE [Suspect]
     Indication: HYPERTENSION
     Dosage: [OLMESARTAN MEDOXOMIL 20MG]/[HYDROCHLOROTHIAZIDE12.5MG], ONCE DAILY
     Route: 048
     Dates: start: 20111001
  2. NORVASC [Suspect]
     Indication: HYPERTENSION
     Dosage: 5 MG, ONCE DAILY
     Route: 048
     Dates: start: 20111001

REACTIONS (2)
  - APNOEA [None]
  - BLOOD PRESSURE INCREASED [None]
